FAERS Safety Report 9959888 (Version 1)
Quarter: 2014Q1

REPORT INFORMATION
  Report Type: Spontaneous
  Country: DE (occurrence: None)
  Receive Date: 20140227
  Receipt Date: 20140227
  Transmission Date: 20141002
  Serious: Yes (Other)
  Sender: FDA-Public Use
  Company Number: AUR-APL-2014-01837

PATIENT
  Age: 39 Year
  Sex: Female

DRUGS (2)
  1. SERTRALINE (SERTALINE) [Suspect]
     Indication: ANXIETY
     Dosage: 50 MG, 1 D, UNKNOWN
     Dates: start: 201305
  2. SPIRONOLACTONE (SPIRONOLACTONE) [Suspect]
     Indication: ACNE
     Dosage: 100 MG (100 MG, 1 IN 1 D), ORAL
     Route: 048
     Dates: start: 20131016, end: 20131212

REACTIONS (3)
  - Anxiety [None]
  - Palpitations [None]
  - Inhibitory drug interaction [None]
